FAERS Safety Report 9056342 (Version 1)
Quarter: 2013Q1

REPORT INFORMATION
  Report Type: Spontaneous
  Country: US (occurrence: US)
  Receive Date: 20130204
  Receipt Date: 20130204
  Transmission Date: 20140127
  Serious: Yes (Hospitalization)
  Sender: FDA-Public Use
  Company Number: US-TEVA-384101USA

PATIENT
  Age: 73 None
  Sex: Female

DRUGS (1)
  1. TREANDA [Suspect]
     Indication: B-CELL LYMPHOMA
     Dosage: 100 MGS/20ML
     Route: 042
     Dates: start: 20120105

REACTIONS (3)
  - Cytomegalovirus chorioretinitis [Unknown]
  - Herpes zoster [Unknown]
  - Lymphopenia [Recovered/Resolved]
